FAERS Safety Report 9322823 (Version 2)
Quarter: 2013Q3

REPORT INFORMATION
  Report Type: Spontaneous
  Country: US (occurrence: US)
  Receive Date: 20130603
  Receipt Date: 20130805
  Transmission Date: 20140515
  Serious: No
  Sender: FDA-Public Use
  Company Number: US-009507513-1305USA016925

PATIENT
  Age: 19 Year
  Sex: Female
  Weight: 98.87 kg

DRUGS (1)
  1. NEXPLANON [Suspect]
     Dosage: 1 DF, UNK
     Route: 059
     Dates: start: 20130528

REACTIONS (3)
  - Implant site haemorrhage [Unknown]
  - Device kink [Recovered/Resolved with Sequelae]
  - Device difficult to use [Recovered/Resolved with Sequelae]
